FAERS Safety Report 8228781-X (Version None)
Quarter: 2012Q1

REPORT INFORMATION
  Report Type: 
  Country: None (occurrence: None)
  Receive Date: 20120322
  Receipt Date: 20120316
  Transmission Date: 20120608
  Serious: Yes (Hospitalization, Congenital Anomaly)
  Sender: FDA-Public Use
  Company Number: US-GLAXOSMITHKLINE-A0951258A

PATIENT
  Sex: Female

DRUGS (6)
  1. MULTI-VITAMINS [Concomitant]
     Route: 064
     Dates: start: 20031101, end: 20041001
  2. ZITHROMAX [Concomitant]
     Indication: UPPER RESPIRATORY TRACT INFECTION
     Route: 064
     Dates: start: 20040801
  3. VITAMIN B6 [Concomitant]
     Route: 064
     Dates: start: 20040127
  4. PAXIL CR [Suspect]
     Indication: ANXIETY
     Dosage: 12.5MG PER DAY
     Route: 064
     Dates: start: 20010101, end: 20070101
  5. FOLIC ACID [Concomitant]
     Route: 064
     Dates: start: 20031101, end: 20041001
  6. ALBUTEROL [Concomitant]
     Indication: UPPER RESPIRATORY TRACT INFECTION
     Route: 064
     Dates: start: 20040801

REACTIONS (6)
  - CEREBRAL PALSY [None]
  - NEURAL TUBE DEFECT [None]
  - SPEECH DISORDER DEVELOPMENTAL [None]
  - PORENCEPHALY [None]
  - CONVULSION [None]
  - FOETAL EXPOSURE DURING PREGNANCY [None]
